FAERS Safety Report 14597588 (Version 1)
Quarter: 2018Q1

REPORT INFORMATION
  Report Type: Spontaneous
  Country: US (occurrence: US)
  Receive Date: 20180305
  Receipt Date: 20180305
  Transmission Date: 20180509
  Serious: No
  Sender: FDA-Public Use
  Company Number: US-AUROBINDO-AUR-APL-2017-39093

PATIENT
  Age: 12 Year
  Sex: Male

DRUGS (3)
  1. LEVETIRACETAM ORAL SOLUTION [Suspect]
     Active Substance: LEVETIRACETAM
     Dosage: 2.4 ML, TWO TIMES A DAY
     Route: 065
  2. LEVETIRACETAM ORAL SOLUTION [Suspect]
     Active Substance: LEVETIRACETAM
     Indication: SEIZURE
     Dosage: 2.6 ML, TWO TIMES A DAY
     Route: 065
  3. LEVETIRACETAM ORAL SOLUTION [Suspect]
     Active Substance: LEVETIRACETAM
     Dosage: 2.6 ML, TWO TIMES A DAY
     Route: 065

REACTIONS (6)
  - Food poisoning [Unknown]
  - Nasopharyngitis [Unknown]
  - Convulsive threshold lowered [Unknown]
  - Therapeutic response changed [Unknown]
  - Anger [Unknown]
  - Malaise [Unknown]

NARRATIVE: CASE EVENT DATE: 201612
